FAERS Safety Report 20025276 (Version 1)
Quarter: 2021Q4

REPORT INFORMATION
  Report Type: Report from Study
  Country: US (occurrence: US)
  Receive Date: 20211102
  Receipt Date: 20211102
  Transmission Date: 20220303
  Serious: Yes (Other)
  Sender: FDA-Public Use
  Company Number: US-JAZZ-2021-US-011876

PATIENT
  Sex: Male

DRUGS (9)
  1. XYREM [Suspect]
     Active Substance: SODIUM OXYBATE
     Indication: Narcolepsy
     Dosage: 2.25 GRAM, BID
     Route: 048
     Dates: start: 201012, end: 201012
  2. XYREM [Suspect]
     Active Substance: SODIUM OXYBATE
     Dosage: 3 GRAM, BID
     Route: 048
     Dates: start: 201012, end: 201101
  3. XYREM [Suspect]
     Active Substance: SODIUM OXYBATE
     Dosage: 2.25 GRAM, BID
     Route: 048
     Dates: start: 201504, end: 201505
  4. XYREM [Suspect]
     Active Substance: SODIUM OXYBATE
     Dosage: DOSE ADJUSTMENT
     Route: 048
     Dates: start: 201505, end: 201509
  5. XYREM [Suspect]
     Active Substance: SODIUM OXYBATE
     Dosage: 4 GRAM, BID
     Route: 048
     Dates: start: 201512, end: 201606
  6. XYREM [Suspect]
     Active Substance: SODIUM OXYBATE
     Dosage: 2.25 GRAM, BID
     Route: 048
     Dates: start: 202003, end: 202004
  7. XYREM [Suspect]
     Active Substance: SODIUM OXYBATE
     Dosage: DOSE ADJUSTMENT
     Route: 048
     Dates: start: 202004, end: 202009
  8. XYREM [Suspect]
     Active Substance: SODIUM OXYBATE
     Dosage: 4 GRAM, BID
     Route: 048
     Dates: start: 202009
  9. CLINDAMYCIN [Suspect]
     Active Substance: CLINDAMYCIN
     Indication: Product used for unknown indication

REACTIONS (3)
  - Clostridium difficile infection [Unknown]
  - Sinus disorder [Unknown]
  - Visual impairment [Unknown]
